FAERS Safety Report 8199250-0 (Version None)
Quarter: 2012Q1

REPORT INFORMATION
  Report Type: 
  Country: None (occurrence: None)
  Receive Date: 20120309
  Receipt Date: 20120229
  Transmission Date: 20120608
  Serious: Yes (Other)
  Sender: FDA-Public Use
  Company Number: US-ELI_LILLY_AND_COMPANY-US201203000653

PATIENT
  Sex: Female

DRUGS (2)
  1. NOVOLOG [Concomitant]
     Dosage: UNK
  2. HUMALOG [Suspect]
     Indication: DIABETES MELLITUS
     Dosage: 4 U, QD

REACTIONS (3)
  - INCORRECT STORAGE OF DRUG [None]
  - DYSPNOEA [None]
  - BLOOD GLUCOSE INCREASED [None]
